FAERS Safety Report 24387502 (Version 1)
Quarter: 2024Q4

REPORT INFORMATION
  Report Type: Spontaneous
  Country: US (occurrence: None)
  Receive Date: 20241001
  Receipt Date: 20241001
  Transmission Date: 20250115
  Serious: No
  Sender: Public
  Company Number: None

PATIENT
  Age: 80 Year
  Sex: Male
  Weight: 88 kg

DRUGS (1)
  1. APIXABAN [Suspect]
     Active Substance: APIXABAN
     Indication: Deep vein thrombosis
     Dosage: FREQUENCY : TWICE A DAY;?
     Route: 048
     Dates: start: 20231020

REACTIONS (6)
  - Haematochezia [None]
  - Haematochezia [None]
  - Abdominal distension [None]
  - Muscle spasms [None]
  - Serum ferritin decreased [None]
  - Haemorrhoids [None]

NARRATIVE: CASE EVENT DATE: 20240122
